FAERS Safety Report 10045923 (Version 1)
Quarter: 2014Q1

REPORT INFORMATION
  Report Type: Spontaneous
  Country: US (occurrence: US)
  Receive Date: 20140330
  Receipt Date: 20140330
  Transmission Date: 20141002
  Serious: No
  Sender: FDA-Public Use
  Company Number: US-009507513-1403USA011819

PATIENT
  Sex: Male

DRUGS (2)
  1. PEGINTRON [Suspect]
     Indication: HEPATITIS C
     Dosage: 1 DF(1 INJECTION), QW,80MCG/0.5ML, REDIPEN
  2. RIBASPHERE [Suspect]
     Indication: HEPATITIS C

REACTIONS (4)
  - Skin exfoliation [Not Recovered/Not Resolved]
  - Disturbance in sexual arousal [Not Recovered/Not Resolved]
  - Rash [Not Recovered/Not Resolved]
  - Product quality issue [Unknown]
